FAERS Safety Report 5665212-8 (Version None)
Quarter: 2008Q1

REPORT INFORMATION
  Report Type: 
  Country: None (occurrence: None)
  Receive Date: 20080314
  Receipt Date: 20050407
  Transmission Date: 20080703
  Serious: No
  Sender: FDA-Public Use
  Company Number: US-ABBOTT-05P-163-0296747-00

PATIENT
  Sex: Female
  Weight: 37.909 kg

DRUGS (7)
  1. HUMIRA [Suspect]
     Indication: JUVENILE ARTHRITIS
     Route: 058
     Dates: start: 20030501
  2. POTASSIUM CHLORIDE [Concomitant]
     Route: 048
     Dates: start: 20020101
  3. FAMOTIDINE [Concomitant]
     Route: 048
     Dates: start: 20020101
  4. VITAMIN CAP [Concomitant]
     Route: 048
     Dates: start: 20020101
  5. PREGAMAL [Concomitant]
     Route: 048
     Dates: start: 20020101
  6. ULTRACET [Concomitant]
     Indication: RHEUMATOID ARTHRITIS
     Route: 048
  7. PREDNISONE TAB [Concomitant]
     Indication: RHEUMATOID ARTHRITIS
     Route: 048

REACTIONS (2)
  - FATIGUE [None]
  - RHEUMATOID ARTHRITIS [None]
